FAERS Safety Report 8302940-X (Version None)
Quarter: 2012Q2

REPORT INFORMATION
  Report Type: 
  Country: None (occurrence: None)
  Receive Date: 20120420
  Receipt Date: 20120417
  Transmission Date: 20120825
  Serious: Yes (Hospitalization)
  Sender: FDA-Public Use
  Company Number: FR-AMGEN-FRASP2012022795

PATIENT
  Age: 75 Year

DRUGS (6)
  1. RITUXIMAB [Concomitant]
     Indication: NON-HODGKIN'S LYMPHOMA
     Dosage: UNK
  2. VINCRISTINE [Concomitant]
     Indication: NON-HODGKIN'S LYMPHOMA
     Dosage: UNK
  3. DOXORUBICIN HCL [Concomitant]
     Indication: NON-HODGKIN'S LYMPHOMA
     Dosage: UNK
  4. NEULASTA [Suspect]
     Indication: CHEMOTHERAPY
     Dosage: UNK
     Route: 065
     Dates: start: 20111230
  5. PREDNISONE TAB [Concomitant]
     Indication: NON-HODGKIN'S LYMPHOMA
     Dosage: UNK
  6. CYCLOPHOSPHAMIDE [Concomitant]
     Indication: NON-HODGKIN'S LYMPHOMA
     Dosage: UNK

REACTIONS (1)
  - FEBRILE BONE MARROW APLASIA [None]
